FAERS Safety Report 25612994 (Version 1)
Quarter: 2025Q3

REPORT INFORMATION
  Report Type: Spontaneous
  Country: US (occurrence: None)
  Receive Date: 20250726
  Receipt Date: 20250726
  Transmission Date: 20251020
  Serious: Yes (Life-Threatening, Hospitalization, Disabling, Other)
  Sender: FDA-CTU
  Company Number: None

PATIENT
  Age: 30 Year
  Sex: Male
  Weight: 47.25 kg

DRUGS (2)
  1. HERBALS\MUSHROOMS UNSPECIFIED [Suspect]
     Active Substance: HERBALS\MUSHROOMS UNSPECIFIED
     Indication: Product used for unknown indication
  2. CIALIS [Concomitant]
     Active Substance: TADALAFIL

REACTIONS (12)
  - Constipation [None]
  - Abdominal pain upper [None]
  - Delirium [None]
  - Malnutrition [None]
  - Internal haemorrhage [None]
  - Hunger [None]
  - Dysbiosis [None]
  - Dyspepsia [None]
  - Diarrhoea [None]
  - Anal incontinence [None]
  - Haematochezia [None]
  - Colitis [None]

NARRATIVE: CASE EVENT DATE: 20240620
